FAERS Safety Report 17896636 (Version 1)
Quarter: 2020Q2

REPORT INFORMATION
  Report Type: Spontaneous
  Country: GB (occurrence: GB)
  Receive Date: 20200615
  Receipt Date: 20200615
  Transmission Date: 20200714
  Serious: Yes (Other)
  Sender: FDA-Public Use
  Company Number: GB-PFIZER INC-2020230396

PATIENT
  Age: 29 Year
  Sex: Female
  Weight: 55 kg

DRUGS (1)
  1. CHAMPIX [Suspect]
     Active Substance: VARENICLINE TARTRATE
     Indication: SMOKING CESSATION THERAPY
     Dosage: 2 MG, 1X/DAY
     Route: 048
     Dates: start: 20200226, end: 20200517

REACTIONS (8)
  - Paraesthesia [Unknown]
  - Skin burning sensation [Unknown]
  - Dry skin [Unknown]
  - Skin fissures [Unknown]
  - Skin atrophy [Unknown]
  - Sensitive skin [Unknown]
  - Dermatitis [Not Recovered/Not Resolved]
  - Pruritus [Unknown]
